FAERS Safety Report 6242842-6 (Version None)
Quarter: 2009Q2

REPORT INFORMATION
  Report Type: 
  Country: None (occurrence: None)
  Receive Date: 20090624
  Receipt Date: 20090622
  Transmission Date: 20091009
  Serious: Yes (Hospitalization)
  Sender: FDA-Public Use
  Company Number: A0792555A

PATIENT
  Sex: Female

DRUGS (4)
  1. AVANDIA [Suspect]
     Dosage: 4MG PER DAY
     Route: 065
     Dates: end: 20090601
  2. ACTOS [Concomitant]
     Route: 065
     Dates: start: 20090601
  3. GLUCOPHAGE [Concomitant]
     Indication: DRUG USE FOR UNKNOWN INDICATION
     Dosage: 500MG TWICE PER DAY
     Route: 065
  4. UNKNOWN MEDICATION [Concomitant]
     Indication: DRUG USE FOR UNKNOWN INDICATION
     Route: 065

REACTIONS (13)
  - ABDOMINAL PAIN UPPER [None]
  - ASTHENIA [None]
  - BONE PAIN [None]
  - DIARRHOEA [None]
  - GAIT DISTURBANCE [None]
  - HYPERHIDROSIS [None]
  - HYPERTENSION [None]
  - INCREASED APPETITE [None]
  - MOOD ALTERED [None]
  - MYALGIA [None]
  - OROPHARYNGEAL BLISTERING [None]
  - VITAMIN D DEFICIENCY [None]
  - WEIGHT INCREASED [None]
